FAERS Safety Report 8447831-9 (Version None)
Quarter: 2012Q2

REPORT INFORMATION
  Report Type: 
  Country: None (occurrence: None)
  Receive Date: 20120612
  Receipt Date: 20120605
  Transmission Date: 20120825
  Serious: Yes (Other)
  Sender: FDA-Public Use
  Company Number: ADR-2012-01034

PATIENT
  Sex: Female

DRUGS (4)
  1. CLONIDINE [Concomitant]
  2. BACLOFEN [Suspect]
     Indication: PAIN
     Dosage: 54.57 MCG/DAY
  3. BACLOFEN [Suspect]
     Indication: POST LAMINECTOMY SYNDROME
     Dosage: 54.57 MCG/DAY
  4. MORPHINE [Concomitant]

REACTIONS (5)
  - DEVICE POWER SOURCE ISSUE [None]
  - CHILLS [None]
  - NAUSEA [None]
  - PAIN [None]
  - YAWNING [None]
